FAERS Safety Report 7752499-0 (Version None)
Quarter: 2011Q3

REPORT INFORMATION
  Report Type: 
  Country: None (occurrence: None)
  Receive Date: 20110915
  Receipt Date: 20110905
  Transmission Date: 20111222
  Serious: Yes (Hospitalization)
  Sender: FDA-Public Use
  Company Number: PHFR2011GB04375

PATIENT
  Sex: Male

DRUGS (4)
  1. CLOZAPINE [Suspect]
     Indication: SCHIZOPHRENIA
     Dosage: 350 MG/DAY
     Route: 048
     Dates: start: 20061106
  2. CLOZAPINE [Suspect]
     Dosage: 250 MG/DAY
     Route: 048
     Dates: start: 20110902
  3. CLOZAPINE [Suspect]
     Dosage: 250 MG/DAY
     Dates: start: 20110903
  4. CLOZAPINE [Suspect]
     Dosage: 300 MG/DAY
     Dates: start: 20110904

REACTIONS (2)
  - OVERDOSE [None]
  - SOMNOLENCE [None]
